FAERS Safety Report 6936640-5 (Version None)
Quarter: 2010Q3

REPORT INFORMATION
  Report Type: 
  Country: None (occurrence: None)
  Receive Date: 20100823
  Receipt Date: 20100730
  Transmission Date: 20110219
  Serious: Yes (Hospitalization)
  Sender: FDA-Public Use
  Company Number: FR-ROCHE-721579

PATIENT
  Sex: Male

DRUGS (10)
  1. CEFTRIAXONE SODIUM [Suspect]
     Indication: PRODUCT USED FOR UNKNOWN INDICATION
     Route: 042
     Dates: start: 20100429, end: 20100507
  2. DUPHALAC [Suspect]
     Indication: PRODUCT USED FOR UNKNOWN INDICATION
     Dosage: DAILY DOSE: 2 SOUP SPOON.
     Route: 048
     Dates: start: 20100506, end: 20100512
  3. OXYCODONE HCL [Suspect]
     Route: 048
     Dates: start: 20100505, end: 20100507
  4. OXYCONTIN [Suspect]
     Route: 048
     Dates: start: 20100505
  5. EQUANIL [Suspect]
     Indication: PRODUCT USED FOR UNKNOWN INDICATION
     Route: 048
     Dates: start: 20100503, end: 20100509
  6. TRIATEC [Suspect]
     Indication: PRODUCT USED FOR UNKNOWN INDICATION
     Route: 048
     Dates: start: 20100505, end: 20100506
  7. CORDARONE [Concomitant]
     Route: 048
  8. LASIX [Concomitant]
     Route: 048
  9. IPRATROPIUM BROMIDE [Concomitant]
     Route: 048
  10. PARACETAMOL [Concomitant]
     Route: 048

REACTIONS (1)
  - CONFUSIONAL STATE [None]
